FAERS Safety Report 8958501 (Version 1)
Quarter: 2012Q4

REPORT INFORMATION
  Report Type: Spontaneous
  Country: US (occurrence: None)
  Receive Date: 20121205
  Receipt Date: 20121205
  Transmission Date: 20130627
  Serious: Yes (Death)
  Sender: FDA-Public Use
  Company Number: None

PATIENT
  Age: 62 Year
  Sex: Male
  Weight: 104.78 kg

DRUGS (1)
  1. VIAGRA 100MG KENNETH MAXWELL ON BOTTLE [Suspect]
     Indication: ERECTILE DYSFUNCTION
     Dates: start: 20121016

REACTIONS (1)
  - Product label issue [None]
